FAERS Safety Report 5594176-0 (Version None)
Quarter: 2008Q1

REPORT INFORMATION
  Report Type: 
  Country: None (occurrence: None)
  Receive Date: 20080107
  Receipt Date: 20071221
  Transmission Date: 20080703
  Serious: Yes (Hospitalization)
  Sender: FDA-Public Use
  Company Number: THYM-1000006

PATIENT
  Age: 55 Year
  Sex: Female

DRUGS (4)
  1. THYMOGLOBULIN [Suspect]
     Indication: RENAL TRANSPLANT
     Dosage: 6 MG/KG, ONCE
  2. TACROLIMUS [Concomitant]
  3. SIROLIMUS (SIROLIMUS) [Concomitant]
  4. MYCOPHENOLATE MOFETIL [Concomitant]

REACTIONS (3)
  - ANTI-THYROID ANTIBODY POSITIVE [None]
  - ENCEPHALOPATHY [None]
  - LYMPHOCYTE COUNT DECREASED [None]
